FAERS Safety Report 26196396 (Version 1)
Quarter: 2025Q4

REPORT INFORMATION
  Report Type: Spontaneous
  Country: US (occurrence: US)
  Receive Date: 20251224
  Receipt Date: 20251224
  Transmission Date: 20260117
  Serious: No
  Sender: SENORES PHARMACEUTICALS
  Company Number: US-Senores-000002

PATIENT

DRUGS (1)
  1. NYSTATIN [Suspect]
     Active Substance: NYSTATIN
     Indication: Product used for unknown indication
     Route: 065
     Dates: start: 20251206

REACTIONS (2)
  - Drug effect less than expected [Unknown]
  - Product colour issue [Unknown]

NARRATIVE: CASE EVENT DATE: 20250101
